FAERS Safety Report 22908070 (Version 4)
Quarter: 2023Q4

REPORT INFORMATION
  Report Type: Report from Study
  Country: US (occurrence: US)
  Receive Date: 20230905
  Receipt Date: 20231201
  Transmission Date: 20240109
  Serious: Yes (Other)
  Sender: FDA-Public Use
  Company Number: US-002147023-NVSC2023US184987

PATIENT
  Age: 80 Year
  Sex: Female
  Weight: 44.4 kg

DRUGS (21)
  1. ENTRESTO [Suspect]
     Active Substance: SACUBITRIL\VALSARTAN
     Indication: Product used for unknown indication
     Dosage: 1 DOSAGE FORM (24/26MG)
     Route: 065
     Dates: start: 20211015
  2. ENTRESTO [Suspect]
     Active Substance: SACUBITRIL\VALSARTAN
     Dosage: 1 DOSAGE FORM, BID (49/51MG)
     Route: 048
     Dates: start: 20230602
  3. SPIRONOLACTONE [Suspect]
     Active Substance: SPIRONOLACTONE
     Indication: Product used for unknown indication
     Dosage: 1 DOSAGE FORM, QD (90 TABLETS)
     Route: 048
     Dates: start: 20230629
  4. BUMEX [Suspect]
     Active Substance: BUMETANIDE
     Indication: Product used for unknown indication
     Dosage: 1 MG, BID
     Route: 065
  5. BUMEX [Suspect]
     Active Substance: BUMETANIDE
     Dosage: 1 MG, QD (ON SATURDAY AND SUNDAY IN THE MORNING)
     Route: 065
  6. CARAFATE [Concomitant]
     Active Substance: SUCRALFATE
     Indication: Product used for unknown indication
     Dosage: UNK
     Route: 065
  7. AMIODARONE [Concomitant]
     Active Substance: AMIODARONE
     Indication: Product used for unknown indication
     Dosage: 1 DOSAGE FORM, QD (90TABLETS)
     Route: 048
     Dates: start: 20210820
  8. AMIODARONE [Concomitant]
     Active Substance: AMIODARONE
     Dosage: 1 DOSAGE FORM, QD (200MG)
     Route: 048
  9. AMOXICILLIN [Concomitant]
     Active Substance: AMOXICILLIN
     Indication: Product used for unknown indication
     Dosage: 2 DOSAGE FORM, BID
     Route: 048
  10. BUMETANIDE [Concomitant]
     Active Substance: BUMETANIDE
     Indication: Product used for unknown indication
     Dosage: 1 DOSAGE FORM, BID (TAKE ONE TABLET BY MOUTH EVERY MORNING AND ONE TABLET BY MOUTH IN THE AFTERNOON
     Route: 048
     Dates: start: 20211220
  11. DORZOLAMIDE HYDROCHLORIDE [Concomitant]
     Active Substance: DORZOLAMIDE HYDROCHLORIDE
     Indication: Product used for unknown indication
     Dosage: 1 DOSAGE FORM, BID (OPHTHALMIC SOLUTION; I GTT BID OU) (2*10ML)
     Route: 065
     Dates: start: 19000101
  12. ELIQUIS [Concomitant]
     Active Substance: APIXABAN
     Indication: Product used for unknown indication
     Dosage: 1 DOSAGE FORM, BID (180DAYS)
     Route: 048
     Dates: start: 20210519
  13. FARXIGA [Concomitant]
     Active Substance: DAPAGLIFLOZIN PROPANEDIOL
     Indication: Product used for unknown indication
     Dosage: 1 DOSAGE FORM, QD (90 TABLETS)
     Route: 048
     Dates: start: 20220718
  14. OMEPRAZOLE [Concomitant]
     Active Substance: OMEPRAZOLE
     Indication: Product used for unknown indication
     Dosage: 1 DOSAGE FORM, BID (DELAYED RELEASE) (20 DAYS)
     Route: 048
     Dates: start: 20230613
  15. PANTOPRAZOLE SODIUM [Concomitant]
     Active Substance: PANTOPRAZOLE SODIUM
     Indication: Product used for unknown indication
     Dosage: 1 DOSAGE FORM, QD (DELAYED RELEASE;)
     Route: 048
  16. SIMVASTATIN [Concomitant]
     Active Substance: SIMVASTATIN
     Indication: Product used for unknown indication
     Dosage: 1 DOSAGE FORM, QD (TAKE 1 TABLET AT BEDTIME) (90 TABLETS)
     Route: 048
  17. SUCRALFATE [Concomitant]
     Active Substance: SUCRALFATE
     Indication: Product used for unknown indication
     Dosage: 1 DOSAGE FORM, QID (1 TABLET 4 TIMES DAILY, BEFORE MEALS AND AT BEDTIME) (360 TABLETS)
     Route: 048
     Dates: start: 20211207
  18. OXYGEN [Concomitant]
     Active Substance: OXYGEN
     Indication: Product used for unknown indication
     Dosage: UNK (0.0, I PER MIN, NASAL CANNULA, 14:34:520
     Route: 065
  19. SODIUM CHLORIDE [Concomitant]
     Active Substance: SODIUM CHLORIDE
     Indication: Product used for unknown indication
     Dosage: 30 ML PER HR, IV, 14:3533
     Route: 042
  20. VERSED [Concomitant]
     Active Substance: MIDAZOLAM HYDROCHLORIDE
     Indication: Product used for unknown indication
     Dosage: 0.6 MG 14:39:56
     Route: 042
  21. FENTANYL [Concomitant]
     Active Substance: FENTANYL\FENTANYL CITRATE
     Indication: Product used for unknown indication
     Dosage: 12.5 UG 14:40:04
     Route: 042

REACTIONS (17)
  - Myocardial infarction [Unknown]
  - Cardiac dysfunction [Unknown]
  - Pelvic fracture [Unknown]
  - Acute kidney injury [Unknown]
  - Hyperkalaemia [Recovered/Resolved]
  - Fall [Unknown]
  - Rib fracture [Unknown]
  - Hypervolaemia [Unknown]
  - Chest pain [Recovering/Resolving]
  - Back pain [Recovering/Resolving]
  - Weight increased [Recovering/Resolving]
  - Dyspnoea exertional [Recovering/Resolving]
  - Oedema peripheral [Recovered/Resolved]
  - Helicobacter gastritis [Unknown]
  - Renal disorder [Unknown]
  - Dizziness [Unknown]
  - Product administration error [Unknown]

NARRATIVE: CASE EVENT DATE: 20230309
